FAERS Safety Report 8150723-6 (Version None)
Quarter: 2012Q1

REPORT INFORMATION
  Report Type: 
  Country: None (occurrence: None)
  Receive Date: 20120220
  Receipt Date: 20120214
  Transmission Date: 20120608
  Serious: No
  Sender: FDA-Public Use
  Company Number: US-BAYER-2012-015758

PATIENT

DRUGS (5)
  1. IBUPROFEN [Concomitant]
  2. 12 HOUR FORMULA [Concomitant]
  3. EXTRA STRENGTH BAYER PM [Concomitant]
  4. ALEVE (CAPLET) [Suspect]
  5. PAMPRIN TAB [Concomitant]

REACTIONS (1)
  - DYSMENORRHOEA [None]
